FAERS Safety Report 17393199 (Version 4)
Quarter: 2020Q2

REPORT INFORMATION
  Report Type: Report from Study
  Country: NL (occurrence: NL)
  Receive Date: 20200207
  Receipt Date: 20200525
  Transmission Date: 20200713
  Serious: Yes (Hospitalization)
  Sender: FDA-Public Use
  Company Number: NL-EMD SERONO-9143971

PATIENT
  Age: 63 Year
  Sex: Female

DRUGS (11)
  1. BACLOFEN. [Concomitant]
     Active Substance: BACLOFEN
     Indication: SCOLIOSIS
  2. DURATEARS                          /00635701/ [Concomitant]
     Indication: SCOLIOSIS
  3. COLECALCIFEROL [Concomitant]
     Active Substance: CHOLECALCIFEROL
     Indication: SCOLIOSIS
  4. ZOLPIDEM [Concomitant]
     Active Substance: ZOLPIDEM TARTRATE
     Indication: SCOLIOSIS
  5. MACROGOL [Concomitant]
     Active Substance: POLYETHYLENE GLYCOLS
     Indication: SCOLIOSIS
  6. PARACETAMOL [Concomitant]
     Active Substance: ACETAMINOPHEN
     Indication: SCOLIOSIS
  7. REBIF [Suspect]
     Active Substance: INTERFERON BETA-1A
     Route: 058
  8. OMEPRAZOLE. [Concomitant]
     Active Substance: OMEPRAZOLE
     Indication: SCOLIOSIS
  9. BETMIGA [Concomitant]
     Active Substance: MIRABEGRON
     Indication: SCOLIOSIS
  10. FENTANYL. [Concomitant]
     Active Substance: FENTANYL
     Indication: SCOLIOSIS
  11. REBIF [Suspect]
     Active Substance: INTERFERON BETA-1A
     Indication: RELAPSING-REMITTING MULTIPLE SCLEROSIS
     Route: 058
     Dates: start: 1994

REACTIONS (5)
  - Weight decreased [Not Recovered/Not Resolved]
  - Product dose omission [Recovered/Resolved]
  - Rehabilitation therapy [Not Recovered/Not Resolved]
  - Drug ineffective [Unknown]
  - Pain [Unknown]
